FAERS Safety Report 8622298-6 (Version None)
Quarter: 2012Q3

REPORT INFORMATION
  Report Type: 
  Country: None (occurrence: None)
  Receive Date: 20120827
  Receipt Date: 20120814
  Transmission Date: 20120928
  Serious: Yes (Other)
  Sender: FDA-Public Use
  Company Number: US-BIOGENIDEC-2012BI032161

PATIENT
  Sex: Female

DRUGS (4)
  1. TYSABRI [Suspect]
     Indication: MULTIPLE SCLEROSIS
     Route: 042
     Dates: start: 20080117, end: 20120523
  2. B COMPLEX SUPPLEMENT [Concomitant]
  3. VITAMIN D SUPPLEMENT [Concomitant]
  4. AVONEX [Concomitant]
     Indication: MULTIPLE SCLEROSIS
     Route: 030
     Dates: start: 19990101

REACTIONS (4)
  - FATIGUE [None]
  - SKIN CANCER [None]
  - VITAMIN D DECREASED [None]
  - DRUG INEFFECTIVE [None]
